FAERS Safety Report 10875549 (Version 1)
Quarter: 2015Q1

REPORT INFORMATION
  Report Type: Spontaneous
  Country: US (occurrence: US)
  Receive Date: 20150227
  Receipt Date: 20150227
  Transmission Date: 20150721
  Serious: No
  Sender: FDA-Public Use
  Company Number: US-AMGEN-USASP2014027379

PATIENT
  Age: 26 Year
  Sex: Female
  Weight: 85.71 kg

DRUGS (3)
  1. IBUPROFEN. [Concomitant]
     Active Substance: IBUPROFEN
     Dosage: UNK
  2. ENBREL [Suspect]
     Active Substance: ETANERCEPT
     Indication: RHEUMATOID ARTHRITIS
     Dosage: 50 MG, QWK
     Route: 058
     Dates: start: 201311
  3. LEVORA-28 [Concomitant]
     Dosage: UNK

REACTIONS (6)
  - Drug effect incomplete [Recovered/Resolved]
  - Pain [Recovered/Resolved]
  - Stress at work [Recovered/Resolved]
  - Condition aggravated [Recovered/Resolved]
  - Joint swelling [Recovered/Resolved]
  - Gait disturbance [Recovered/Resolved]

NARRATIVE: CASE EVENT DATE: 201403
